FAERS Safety Report 4786906-2 (Version None)
Quarter: 2005Q3

REPORT INFORMATION
  Report Type: 
  Country: None (occurrence: None)
  Receive Date: 20050930
  Receipt Date: 20050921
  Transmission Date: 20060218
  Serious: Yes (Other)
  Sender: FDA-Public Use
  Company Number: 2005131094

PATIENT
  Age: 68 Year
  Sex: Male
  Weight: 97.5234 kg

DRUGS (1)
  1. LIPITOR [Suspect]
     Indication: ILL-DEFINED DISORDER
     Dosage: 20 MG (20 MG, 1 IN 1 D)

REACTIONS (5)
  - CONDITION AGGRAVATED [None]
  - HYPOACUSIS [None]
  - MITRAL VALVE REPAIR [None]
  - MYALGIA [None]
  - TRICUSPID VALVE REPAIR [None]
